FAERS Safety Report 8965269 (Version 2)
Quarter: 2013Q2

REPORT INFORMATION
  Report Type: Report from Study
  Country: SE (occurrence: SE)
  Receive Date: 20121214
  Receipt Date: 20130403
  Transmission Date: 20140414
  Serious: Yes (Hospitalization)
  Sender: FDA-Public Use
  Company Number: SE-ROCHE-1165369

PATIENT
  Age: 60 Year
  Sex: Male

DRUGS (7)
  1. CAPECITABINE [Suspect]
     Indication: GASTRIC CANCER
     Dosage: DATE OF LAST DOSE TAKEN PRIOR TO SAE 30/NOV/2012
     Route: 048
     Dates: start: 20121031
  2. EPIRUBICIN HYDROCHLORIDE [Suspect]
     Indication: GASTRIC CANCER
     Dosage: DATE OF LAST DOSE TAKEN PRIOR TO SAE 21/NOV/2012
     Route: 042
     Dates: start: 20121031
  3. OXALIPLATIN [Suspect]
     Indication: GASTRIC CANCER
     Dosage: DATE OF LAST DOSE TAKEN PRIOR TO SAE 21/NOV/2012
     Route: 042
     Dates: start: 20121031
  4. ONDANSETRON [Concomitant]
     Route: 065
     Dates: start: 20121030
  5. LOPERAMIDE [Concomitant]
     Route: 065
     Dates: start: 20121030
  6. METOCLOPRAMIDE [Concomitant]
     Route: 065
     Dates: start: 20121030
  7. KODEIN [Concomitant]
     Route: 065
     Dates: start: 20121113, end: 20130212

REACTIONS (4)
  - Vomiting [Recovered/Resolved]
  - Decreased appetite [Recovered/Resolved]
  - Diarrhoea [Recovered/Resolved]
  - Malnutrition [Recovered/Resolved]
